FAERS Safety Report 9631073 (Version 1)
Quarter: 2013Q4

REPORT INFORMATION
  Report Type: Spontaneous
  Country: US (occurrence: None)
  Receive Date: 20131015
  Receipt Date: 20131015
  Transmission Date: 20140711
  Serious: Yes (Other)
  Sender: FDA-Public Use
  Company Number: 1934056

PATIENT
  Age: 35 Year
  Sex: Female
  Weight: 113 kg

DRUGS (11)
  1. FENTANYL CITRATE [Suspect]
     Indication: PREMEDICATION
     Dosage: NOT OTHERWISE SPECIFIED
     Route: 042
  2. FENTANYL CITRATE [Suspect]
     Indication: ANAESTHESIA
     Dosage: NOT OTHERWISE SPECIFIED
     Route: 042
  3. PROPOFOL [Suspect]
     Indication: ANAESTHESIA
     Route: 042
  4. QUETIAPINE [Suspect]
     Indication: PRODUCT USED FOR UNKNOWN INDICATION
  5. LAMOTRIGINE [Concomitant]
  6. VENLAFAXINE [Concomitant]
  7. MIDAZOLAM [Concomitant]
  8. LIDOCAINE [Concomitant]
  9. SUCCINYLCHOLINE [Concomitant]
  10. OXYGEN [Concomitant]
  11. DESFLURANE [Concomitant]

REACTIONS (4)
  - Blood pressure increased [None]
  - Paralysis [None]
  - Blood pressure decreased [None]
  - Drug interaction [None]
